FAERS Safety Report 9701399 (Version 1)
Quarter: 2013Q4

REPORT INFORMATION
  Report Type: Spontaneous
  Country: NO (occurrence: NO)
  Receive Date: 20131121
  Receipt Date: 20131121
  Transmission Date: 20140711
  Serious: Yes (Other)
  Sender: FDA-Public Use
  Company Number: NO-AMGEN-NORSP2013080959

PATIENT
  Age: 82 Year
  Sex: Female

DRUGS (12)
  1. PROLIA [Suspect]
     Indication: OSTEOPOROSIS
     Dosage: UNK
     Route: 065
     Dates: start: 201205
  2. FURIX [Concomitant]
     Dosage: 40 MG, UNK
  3. PREDNISOLONE [Concomitant]
  4. PANODIL [Concomitant]
     Dosage: 1 G, UNK
  5. OXYNORM [Concomitant]
     Indication: PAIN
     Route: 048
  6. DUROGESIC [Concomitant]
     Route: 062
  7. FAMOTIDINE [Concomitant]
  8. LANSOPRAZOLE [Concomitant]
     Route: 048
  9. DONEPEZIL [Concomitant]
     Indication: DEMENTIA
     Dosage: 5 MG, UNK
     Route: 048
  10. KALEORID [Concomitant]
     Dosage: 750 MG, UNK
  11. RENITEC                            /00574902/ [Concomitant]
     Indication: HYPERTENSION
     Dosage: 5 MG, UNK
  12. CALCIGRAN                          /00434901/ [Concomitant]

REACTIONS (1)
  - Osteonecrosis of jaw [Unknown]
